FAERS Safety Report 23515787 (Version 1)
Quarter: 2024Q1

REPORT INFORMATION
  Report Type: 
  Country: None (occurrence: None)
  Receive Date: 20240213
  Receipt Date: 20240213
  Transmission Date: 20240410
  Serious: No
  Sender: FDA-Public Use
  Company Number: MA-ROCHE-3497629

PATIENT
  Weight: 74 kg

DRUGS (3)
  1. OCREVUS [Suspect]
     Active Substance: OCRELIZUMAB
     Dates: start: 20240118
  2. INSULIN NOS [Concomitant]
     Active Substance: INSULIN NOS
  3. AMLODIPINE [Concomitant]
     Active Substance: AMLODIPINE BESYLATE

REACTIONS (9)
  - Pruritus [None]
  - Erythema [None]
  - Paraesthesia [None]
  - Headache [None]
  - Urticaria [None]
  - Pharyngeal swelling [None]
  - Neck pain [None]
  - Back pain [None]
  - Hypersensitivity [None]
